FAERS Safety Report 24099123 (Version 1)
Quarter: 2024Q3

REPORT INFORMATION
  Report Type: Report from Study
  Country: US (occurrence: US)
  Receive Date: 20240716
  Receipt Date: 20240716
  Transmission Date: 20241017
  Serious: Yes (Other)
  Sender: JOHNSON AND JOHNSON
  Company Number: US-JNJFOC-20240650129

PATIENT
  Age: 62 Year
  Sex: Male

DRUGS (5)
  1. SPRAVATO [Suspect]
     Active Substance: ESKETAMINE
     Indication: Depression
     Dosage: ^56 MG, 1 TOTAL DOSE^, ALSO CONFLICTINGLY START DATE WAS REPORTED AS DEC-2023
     Dates: start: 20231130, end: 20231130
  2. SPRAVATO [Suspect]
     Active Substance: ESKETAMINE
     Indication: Suicidal ideation
     Dosage: ^84 MG, 26 TOTAL DOSES^
     Dates: start: 20231205, end: 20240606
  3. SPRAVATO [Suspect]
     Active Substance: ESKETAMINE
     Indication: Post-traumatic stress disorder
     Dosage: ^84 MG, 1 TOTAL DOSE^, RECENT DOSE
     Dates: start: 20240618, end: 20240618
  4. SPRAVATO [Suspect]
     Active Substance: ESKETAMINE
     Indication: Anxiety
  5. LISINOPRIL [Concomitant]
     Active Substance: LISINOPRIL
     Indication: Hypertension
     Route: 065

REACTIONS (5)
  - Hallucination, visual [Unknown]
  - Blood pressure increased [Recovered/Resolved]
  - Post-traumatic stress disorder [Unknown]
  - Sedation [Recovered/Resolved]
  - Dissociation [Recovered/Resolved]

NARRATIVE: CASE EVENT DATE: 20240618
